FAERS Safety Report 18817541 (Version 1)
Quarter: 2021Q1

REPORT INFORMATION
  Report Type: Spontaneous
  Country: CN (occurrence: CN)
  Receive Date: 20210201
  Receipt Date: 20210201
  Transmission Date: 20210419
  Serious: Yes (Hospitalization)
  Sender: FDA-Public Use
  Company Number: CN-BAXTER-2021BAX002068

PATIENT
  Age: 54 Year
  Sex: Female
  Weight: 67 kg

DRUGS (4)
  1. ENDOXAN [Suspect]
     Active Substance: CYCLOPHOSPHAMIDE
     Indication: BREAST CANCER
     Dosage: DAY 1, ENDOXAN + 0.9% SODIUM CHLORIDE 100 ML
     Route: 041
     Dates: start: 20210114, end: 20210114
  2. PIRARUBICIN HYDROCHLORIDE [Suspect]
     Active Substance: PIRARUBICIN HYDROCHLORIDE
     Indication: BREAST CANCER
     Dosage: DAY 1, PIRARUBICIN HYDROCHLORIDE + 5% GLUCOSE 100 ML
     Route: 041
     Dates: start: 20210114, end: 20210114
  3. 0.9% SODIUM CHLORIDE INJECTION [Suspect]
     Active Substance: SODIUM CHLORIDE
     Indication: MEDICATION DILUTION
     Dosage: DAY 1, 0.9% SODIUM CHLORIDE + CYCLOPHOSPHAMIDE 900 MG
     Route: 041
     Dates: start: 20210114, end: 20210114
  4. 5% GLUCOSE  INJECTION [Suspect]
     Active Substance: DEXTROSE
     Indication: MEDICATION DILUTION
     Dosage: DAY 1, 5% GLUCOSE + PIRARUBICIN HYDROCHLORIDE 90 MG
     Route: 041
     Dates: start: 20210114, end: 20210114

REACTIONS (1)
  - Myelosuppression [Not Recovered/Not Resolved]

NARRATIVE: CASE EVENT DATE: 20210121
